FAERS Safety Report 8409848 (Version 4)
Quarter: 2014Q1

REPORT INFORMATION
  Report Type: Spontaneous
  Country: US (occurrence: None)
  Receive Date: 20120426
  Receipt Date: 20130107
  Transmission Date: 20141002
  Serious: No
  Sender: FDA-Public Use
  Company Number: PHEH2011US08423

PATIENT
  Age: 23 Year
  Sex: Female

DRUGS (1)
  1. GILENYA [Suspect]
     Indication: MULTIPLE SCLEROSIS
     Dosage: 0.5 MG, QD, ORAL
     Route: 048
     Dates: start: 20110919

REACTIONS (7)
  - Photophobia [None]
  - Rhinorrhoea [None]
  - Lacrimation increased [None]
  - Eye pain [None]
  - Chills [None]
  - Decreased appetite [None]
  - Influenza [None]
